FAERS Safety Report 7536743-0 (Version None)
Quarter: 2011Q2

REPORT INFORMATION
  Report Type: 
  Country: None (occurrence: None)
  Receive Date: 20110609
  Receipt Date: 20110601
  Transmission Date: 20111010
  Serious: Yes (Death, Hospitalization)
  Sender: FDA-Public Use
  Company Number: B0724891A

PATIENT
  Sex: Female

DRUGS (1)
  1. HYCAMTIN [Suspect]
     Indication: OVARIAN CANCER
     Route: 065
     Dates: start: 20110314, end: 20110317

REACTIONS (10)
  - OXYGEN SATURATION DECREASED [None]
  - PYREXIA [None]
  - HEART RATE INCREASED [None]
  - DEATH [None]
  - ASTHENIA [None]
  - COUGH [None]
  - AGRANULOCYTOSIS [None]
  - CYANOSIS [None]
  - HYPOTENSION [None]
  - GENERAL PHYSICAL HEALTH DETERIORATION [None]
